FAERS Safety Report 4698841-9 (Version None)
Quarter: 2005Q2

REPORT INFORMATION
  Report Type: 
  Country: None (occurrence: None)
  Receive Date: 20050622
  Receipt Date: 20050602
  Transmission Date: 20051028
  Serious: Yes (Other)
  Sender: FDA-Public Use
  Company Number: CIO05009861

PATIENT
  Age: 38 Year
  Sex: Male

DRUGS (1)
  1. CREST WHITENING EXPRESSION, REFRESHING VANILLA MINT FLAVOR (SODIUM CHL [Suspect]
     Dosage: 1 APPLIC, 1/DAY FOR 2 DAYS, INTRAORAL
     Route: 048
     Dates: start: 20050601, end: 20050602

REACTIONS (5)
  - CHEST DISCOMFORT [None]
  - HYPERSENSITIVITY [None]
  - SWELLING [None]
  - THROAT IRRITATION [None]
  - URTICARIA GENERALISED [None]
